FAERS Safety Report 13338500 (Version 1)
Quarter: 2017Q1

REPORT INFORMATION
  Report Type: Spontaneous
  Country: US (occurrence: US)
  Receive Date: 20170315
  Receipt Date: 20170315
  Transmission Date: 20170428
  Serious: No
  Sender: FDA-Public Use
  Company Number: US-LPDUSPRD-20160934

PATIENT
  Age: 52 Year
  Sex: Female
  Weight: 77.1 kg

DRUGS (1)
  1. ESTRADIOL VALERATE INJECTION, USP (0870-05) [Suspect]
     Active Substance: ESTRADIOL VALERATE
     Dosage: 1 ML BI-MONTHLY/GLUTEAL MUSCLE
     Route: 030
     Dates: start: 2011

REACTIONS (1)
  - Off label use [Unknown]

NARRATIVE: CASE EVENT DATE: 2011
